FAERS Safety Report 8492923-1 (Version None)
Quarter: 2012Q3

REPORT INFORMATION
  Report Type: 
  Country: None (occurrence: None)
  Receive Date: 20120706
  Receipt Date: 20120629
  Transmission Date: 20120928
  Serious: Yes (Death)
  Sender: FDA-Public Use
  Company Number: US-GLAXOSMITHKLINE-A0976458A

PATIENT
  Age: 46 Year
  Sex: Female

DRUGS (9)
  1. TYKERB [Suspect]
     Indication: PRODUCT USED FOR UNKNOWN INDICATION
     Dosage: 250MG PER DAY
     Route: 048
  2. EXALGO [Concomitant]
  3. BACLOFEN [Concomitant]
  4. LYRICA [Concomitant]
  5. HYDROMORPHONE HCL [Concomitant]
  6. AMBIEN [Concomitant]
  7. VALIUM [Concomitant]
  8. MULTI-VITAMINS [Concomitant]
  9. NUCYNTA [Concomitant]

REACTIONS (1)
  - DEATH [None]
